FAERS Safety Report 4486495-6 (Version None)
Quarter: 2004Q4

REPORT INFORMATION
  Report Type: 
  Country: None (occurrence: None)
  Receive Date: 20041021
  Receipt Date: 20041007
  Transmission Date: 20050328
  Serious: Yes (Other)
  Sender: FDA-Public Use
  Company Number: 2004237661IE

PATIENT
  Age: 42 Year
  Sex: Male

DRUGS (3)
  1. DELTA-CORTEF [Suspect]
     Indication: IMMUNOSUPPRESSION
  2. TACROLIMUS (TACROLIMUS) [Concomitant]
  3. MYCOPHENOLATE MOFETIL (MYCOPHENOLATE MOFETIL) [Concomitant]

REACTIONS (5)
  - CULTURE POSITIVE [None]
  - GRANULOMA [None]
  - INFLAMMATION [None]
  - SQUAMOUS CELL CARCINOMA [None]
  - TRICHOPHYTON INFECTION [None]
